FAERS Safety Report 4704713-3 (Version None)
Quarter: 2005Q2

REPORT INFORMATION
  Report Type: 
  Country: None (occurrence: None)
  Receive Date: 20050630
  Receipt Date: 20050616
  Transmission Date: 20051028
  Serious: Yes (Life-Threatening, Hospitalization, Other)
  Sender: FDA-Public Use
  Company Number: 2005077982

PATIENT
  Age: 30 Year
  Sex: Male

DRUGS (5)
  1. GEODON [Suspect]
     Indication: ANXIETY
     Dosage: 120 MG (60 MG, 2 IN 1 D), ORAL
     Route: 048
  2. GEODON [Suspect]
     Indication: SCHIZOPHRENIA
     Dosage: 120 MG (60 MG, 2 IN 1 D), ORAL
     Route: 048
  3. QUETIAPINE FUMARATE [Suspect]
     Indication: ILL-DEFINED DISORDER
     Dosage: 400 MG (200 MG, 2 IN 1 D), ORAL
     Route: 048
  4. CLOMIPRAMINE HCL [Concomitant]
  5. SEROQUEL [Concomitant]

REACTIONS (2)
  - DIALYSIS [None]
  - PULMONARY EMBOLISM [None]
